FAERS Safety Report 12637439 (Version 1)
Quarter: 2016Q3

REPORT INFORMATION
  Report Type: Spontaneous
  Country: US (occurrence: US)
  Receive Date: 20160809
  Receipt Date: 20160809
  Transmission Date: 20161109
  Serious: No
  Sender: FDA-Public Use
  Company Number: US-BEH-2016062151

PATIENT
  Sex: Male
  Weight: 91 kg

DRUGS (27)
  1. PRIVIGEN [Suspect]
     Active Substance: HUMAN IMMUNOGLOBULIN G
     Route: 042
     Dates: start: 20151106
  2. CLONAZEPAM. [Concomitant]
     Active Substance: CLONAZEPAM
  3. DILTIAZEM. [Concomitant]
     Active Substance: DILTIAZEM
  4. PREVACID [Concomitant]
     Active Substance: LANSOPRAZOLE
  5. ALPHAGAN P [Concomitant]
     Active Substance: BRIMONIDINE TARTRATE
  6. PRIVIGEN [Suspect]
     Active Substance: HUMAN IMMUNOGLOBULIN G
     Indication: PARANEOPLASTIC NEUROLOGICAL SYNDROME
     Route: 042
  7. PRIVIGEN [Suspect]
     Active Substance: HUMAN IMMUNOGLOBULIN G
     Route: 042
  8. EPIPEN [Concomitant]
     Active Substance: EPINEPHRINE
  9. DETROL [Concomitant]
     Active Substance: TOLTERODINE TARTRATE
  10. CELEBREX [Concomitant]
     Active Substance: CELECOXIB
  11. ACETAMINOPHEN. [Concomitant]
     Active Substance: ACETAMINOPHEN
  12. LIDOCAINE. [Concomitant]
     Active Substance: LIDOCAINE
  13. HYDROCHLOTHIAZIDE [Concomitant]
     Active Substance: HYDROCHLOROTHIAZIDE
  14. PULMICORT TURBUHALER [Concomitant]
     Active Substance: BUDESONIDE
  15. NORMAL SALINE [Concomitant]
     Active Substance: SODIUM CHLORIDE
  16. SODIUM CHLORIDE. [Concomitant]
     Active Substance: SODIUM CHLORIDE
  17. AXIRON [Concomitant]
     Active Substance: TESTOSTERONE
  18. XALATAN [Concomitant]
     Active Substance: LATANOPROST
  19. ASPIRIN. [Concomitant]
     Active Substance: ASPIRIN
  20. DIPHENHYDRAMINE. [Concomitant]
     Active Substance: DIPHENHYDRAMINE
  21. HEPARIN [Concomitant]
     Active Substance: HEPARIN SODIUM
  22. IBUPROFEN. [Concomitant]
     Active Substance: IBUPROFEN
  23. VENTOLIN [Concomitant]
     Active Substance: ALBUTEROL SULFATE
  24. VITAMIN D [Concomitant]
     Active Substance: CHOLECALCIFEROL
  25. PRIVIGEN [Suspect]
     Active Substance: HUMAN IMMUNOGLOBULIN G
     Route: 042
  26. SINGULAIR [Concomitant]
     Active Substance: MONTELUKAST SODIUM
  27. SYNTHROID [Concomitant]
     Active Substance: LEVOTHYROXINE SODIUM

REACTIONS (1)
  - Chills [Unknown]
